FAERS Safety Report 16261459 (Version 1)
Quarter: 2019Q2

REPORT INFORMATION
  Report Type: Spontaneous
  Country: US (occurrence: US)
  Receive Date: 20190501
  Receipt Date: 20190501
  Transmission Date: 20190711
  Serious: Yes (Hospitalization, Disabling)
  Sender: FDA-Public Use
  Company Number: US-BLISTEX INC.-2066497

PATIENT
  Sex: Female

DRUGS (1)
  1. BLISTEX IVAREST POISON IVY ITCH [Suspect]
     Active Substance: PRAMOXINE HYDROCHLORIDE\ZINC ACETATE
     Route: 003
     Dates: start: 201808

REACTIONS (1)
  - Adverse reaction [Not Recovered/Not Resolved]

NARRATIVE: CASE EVENT DATE: 20180802
